FAERS Safety Report 7597142-9 (Version None)
Quarter: 2011Q3

REPORT INFORMATION
  Report Type: 
  Country: None (occurrence: None)
  Receive Date: 20110708
  Receipt Date: 20100628
  Transmission Date: 20111222
  Serious: No
  Sender: FDA-Public Use
  Company Number: US-GLAXOSMITHKLINE-A0685636A

PATIENT
  Age: 70 Year
  Sex: Female

DRUGS (6)
  1. FLOVENT [Suspect]
     Indication: CHRONIC OBSTRUCTIVE PULMONARY DISEASE
     Dosage: 1PUFF TWICE PER DAY
     Route: 055
  2. XANAX [Concomitant]
  3. ALBUTEROL SULFATE AUTOHALER [Concomitant]
  4. SEREVENT [Concomitant]
     Route: 055
  5. SEREVENT [Suspect]
     Indication: CHRONIC OBSTRUCTIVE PULMONARY DISEASE
     Dosage: 1PUFF TWICE PER DAY
     Route: 055
  6. ADVAIR DISKUS 100/50 [Suspect]
     Indication: CHRONIC OBSTRUCTIVE PULMONARY DISEASE
     Dosage: 1PUFF TWICE PER DAY
     Route: 055
     Dates: start: 20020101, end: 20020101

REACTIONS (3)
  - DIARRHOEA [None]
  - CANDIDIASIS [None]
  - PRURITUS [None]
